FAERS Safety Report 6601581-X (Version None)
Quarter: 2010Q1

REPORT INFORMATION
  Report Type: 
  Country: None (occurrence: None)
  Receive Date: 20100225
  Receipt Date: 20100119
  Transmission Date: 20100710
  Serious: No
  Sender: FDA-Public Use
  Company Number: US-KINGPHARMUSA00001-K201000062

PATIENT
  Sex: Female
  Weight: 68.027 kg

DRUGS (5)
  1. FLECTOR [Suspect]
     Indication: TENDON RUPTURE
     Dosage: 0.5 PATCH, Q12H
     Route: 061
     Dates: start: 20100101, end: 20100101
  2. TRIAMTEREN COMP [Concomitant]
     Indication: HYPERTENSION
     Dosage: 0.5 DF, QD
  3. PLAVIX [Concomitant]
     Indication: CEREBROVASCULAR ACCIDENT PROPHYLAXIS
     Dosage: 75 MG, QD
  4. OSTEO BI-FLEX [Concomitant]
     Indication: ATAXIA
     Dosage: UNK
  5. JUICE PLUS [Concomitant]
     Indication: ROUTINE HEALTH MAINTENANCE
     Dosage: UNK
     Dates: start: 20050101

REACTIONS (9)
  - ABDOMINAL PAIN UPPER [None]
  - ARTHRALGIA [None]
  - DIZZINESS [None]
  - EYE PAIN [None]
  - FEELING ABNORMAL [None]
  - HEADACHE [None]
  - INSOMNIA [None]
  - PAIN IN EXTREMITY [None]
  - URINE FLOW DECREASED [None]
